FAERS Safety Report 19010873 (Version 2)
Quarter: 2021Q1

REPORT INFORMATION
  Report Type: Spontaneous
  Country: CN (occurrence: CN)
  Receive Date: 20210315
  Receipt Date: 20210318
  Transmission Date: 20210420
  Serious: Yes (Death, Hospitalization, Other)
  Sender: FDA-Public Use
  Company Number: CN-GLAXOSMITHKLINE-CN2021APC026890

PATIENT
  Age: 86 Year
  Sex: Female

DRUGS (1)
  1. SERETIDE [Suspect]
     Active Substance: FLUTICASONE PROPIONATE\SALMETEROL XINAFOATE
     Indication: ASTHMA
     Dosage: UNK 50/250UG 60D (INHALED 5 DOSES (WHETHER SHE)
     Route: 055

REACTIONS (9)
  - Underdose [Unknown]
  - Product complaint [Unknown]
  - Drug ineffective [Unknown]
  - Asthma [Unknown]
  - Wrong technique in product usage process [Unknown]
  - Death [Fatal]
  - Dyspnoea [Unknown]
  - Hospitalisation [Unknown]
  - Product use issue [Unknown]

NARRATIVE: CASE EVENT DATE: 20210216
